FAERS Safety Report 15668009 (Version 2)
Quarter: 2018Q4

REPORT INFORMATION
  Report Type: Spontaneous
  Country: JP (occurrence: JP)
  Receive Date: 20181128
  Receipt Date: 20181215
  Transmission Date: 20190205
  Serious: Yes (Hospitalization, Other)
  Sender: FDA-Public Use
  Company Number: JP-AMGEN-JPNSP2018143342

PATIENT
  Age: 64 Year
  Sex: Female
  Weight: 69 kg

DRUGS (12)
  1. RANMARK [Suspect]
     Active Substance: DENOSUMAB
     Indication: BREAST CANCER
     Dosage: 120 MG, UNK
     Route: 058
     Dates: start: 20151105, end: 20170705
  2. ZOMETA [Suspect]
     Active Substance: ZOLEDRONIC ACID
     Indication: PRODUCT USED FOR UNKNOWN INDICATION
     Dosage: 4 MG, QMO
     Route: 065
     Dates: start: 20130326, end: 20151006
  3. CELECOX [Concomitant]
     Active Substance: CELECOXIB
     Dosage: 100 MG, BID
     Route: 048
     Dates: start: 20140610
  4. FEMARA [Concomitant]
     Active Substance: LETROZOLE
     Dosage: 2.5 MG, QD
     Route: 048
     Dates: start: 20131224
  5. NEUROTROPIN [Concomitant]
     Active Substance: NEUROTROPIN
     Dosage: 4 IU, QID
     Route: 048
     Dates: start: 20140619
  6. LIMAPROST ALFADEX [Concomitant]
     Active Substance: LIMAPROST
     Dosage: 5 MUG, TID
     Route: 048
     Dates: start: 20150903
  7. RANMARK [Suspect]
     Active Substance: DENOSUMAB
     Indication: METASTASES TO THE MEDIASTINUM
  8. OXYCONTIN [Concomitant]
     Active Substance: OXYCODONE HYDROCHLORIDE
     Dosage: 5 MG, BID
     Route: 048
     Dates: start: 20140902
  9. METHYCOBAL [Concomitant]
     Active Substance: METHYLCOBALAMIN
     Dosage: 500 MUG, TID
     Route: 048
     Dates: start: 20140303
  10. REBAMIPIDE [Concomitant]
     Active Substance: REBAMIPIDE
     Dosage: 100 MG, BID
     Route: 048
     Dates: start: 20150310
  11. LYRICA [Concomitant]
     Active Substance: PREGABALIN
     Dosage: 75 MG, BID
     Route: 048
     Dates: start: 20140303
  12. LOXOMARIN [Concomitant]
     Active Substance: LOXOPROFEN
     Dosage: 60 MG, QD
     Route: 048
     Dates: start: 20170711

REACTIONS (2)
  - Osteonecrosis of jaw [Not Recovered/Not Resolved]
  - Pathological fracture [Not Recovered/Not Resolved]

NARRATIVE: CASE EVENT DATE: 20161223
